FAERS Safety Report 6524655-0 (Version None)
Quarter: 2010Q1

REPORT INFORMATION
  Report Type: 
  Country: None (occurrence: None)
  Receive Date: 20100104
  Receipt Date: 20091029
  Transmission Date: 20100710
  Serious: Yes (Other)
  Sender: FDA-Public Use
  Company Number: KR-SANOFI-AVENTIS-200922079GDDC

PATIENT
  Age: 66 Year
  Sex: Male
  Weight: 72.4 kg

DRUGS (5)
  1. AFLIBERCEPT [Suspect]
     Indication: NON-SMALL CELL LUNG CANCER
     Dosage: DOSE UNIT: 6 MG/KG
     Route: 042
     Dates: start: 20090304, end: 20090304
  2. DOCETAXEL [Suspect]
     Indication: NON-SMALL CELL LUNG CANCER
     Dosage: DOSE UNIT: 60 MG/M**2
     Route: 042
     Dates: start: 20090304, end: 20090304
  3. CORTICOSTEROID NOS [Concomitant]
  4. HEXOMEDINE TOPICAL ^THERAPLIX^ [Concomitant]
     Dates: start: 20090121
  5. HEXOMEDINE TOPICAL ^THERAPLIX^ [Concomitant]
     Dates: start: 20090121

REACTIONS (1)
  - HAEMANGIOMA [None]
